FAERS Safety Report 14869479 (Version 3)
Quarter: 2018Q3

REPORT INFORMATION
  Report Type: Spontaneous
  Country: IT (occurrence: IT)
  Receive Date: 20180509
  Receipt Date: 20180803
  Transmission Date: 20181010
  Serious: Yes (Other)
  Sender: FDA-Public Use
  Company Number: PHHY2018IT004688

PATIENT
  Age: 36 Year
  Sex: Female

DRUGS (4)
  1. TACHIPIRINA [Suspect]
     Active Substance: ACETAMINOPHEN
     Indication: TONSILLITIS
     Dosage: UNK
     Route: 065
  2. AMOXICILLIN TRIHYDRATE [Suspect]
     Active Substance: AMOXICILLIN
     Indication: TONSILLITIS
     Dosage: UNK
     Route: 065
  3. ASPIRINA [Suspect]
     Active Substance: ASPIRIN
     Indication: TONSILLITIS
     Dosage: UNK
     Route: 065
  4. VOLTFAST [Suspect]
     Active Substance: DICLOFENAC
     Indication: TONSILLITIS
     Dosage: UNK
     Route: 065

REACTIONS (2)
  - Pruritus [Unknown]
  - Urticaria [Unknown]

NARRATIVE: CASE EVENT DATE: 20180220
